FAERS Safety Report 8302435-3 (Version None)
Quarter: 2012Q2

REPORT INFORMATION
  Report Type: 
  Country: None (occurrence: None)
  Receive Date: 20120420
  Receipt Date: 20120404
  Transmission Date: 20120825
  Serious: Yes (Other)
  Sender: FDA-Public Use
  Company Number: CHPA2012US008892

PATIENT
  Age: 86 Year
  Sex: Male

DRUGS (2)
  1. TYLENOL (CAPLET) [Concomitant]
     Dosage: UNK, UNK
  2. MAALOX ADV MAXIMUM STRENGTH ANTACID/ANTIGAS [Suspect]
     Indication: ULCER
     Dosage: 1 TSP OR 1 TBSP, QD OR QOD
     Route: 048
     Dates: start: 19590101

REACTIONS (9)
  - SQUAMOUS CELL CARCINOMA [None]
  - SINUSITIS [None]
  - DEMENTIA [None]
  - LARYNGEAL CANCER [None]
  - NEOPLASM MALIGNANT [None]
  - OFF LABEL USE [None]
  - LYMPHOMA [None]
  - INCORRECT DRUG ADMINISTRATION DURATION [None]
  - UNDERDOSE [None]
